FAERS Safety Report 4708559-1 (Version None)
Quarter: 2005Q3

REPORT INFORMATION
  Report Type: 
  Country: None (occurrence: None)
  Receive Date: 20050706
  Receipt Date: 20050624
  Transmission Date: 20060218
  Serious: Yes (Other)
  Sender: FDA-Public Use
  Company Number: 2005092933

PATIENT
  Sex: Male
  Weight: 135.1719 kg

DRUGS (1)
  1. VIAGRA [Suspect]
     Indication: ERECTILE DYSFUNCTION
     Dosage: (25 MG), ORAL
     Route: 048
     Dates: end: 20050101

REACTIONS (1)
  - OPTIC ISCHAEMIC NEUROPATHY [None]
